FAERS Safety Report 21259418 (Version 2)
Quarter: 2022Q4

REPORT INFORMATION
  Report Type: Report from Study
  Country: US (occurrence: US)
  Receive Date: 20220826
  Receipt Date: 20221027
  Transmission Date: 20230113
  Serious: Yes (Hospitalization, Other)
  Sender: FDA-Public Use
  Company Number: US-ABBVIE-22K-163-4516567-00

PATIENT
  Sex: Male

DRUGS (2)
  1. SKYRIZI [Suspect]
     Active Substance: RISANKIZUMAB-RZAA
     Indication: Psoriasis
     Route: 058
     Dates: start: 20211214
  2. SKYRIZI [Suspect]
     Active Substance: RISANKIZUMAB-RZAA
     Route: 058
     Dates: start: 20211214

REACTIONS (13)
  - Myocardial infarction [Unknown]
  - Pain in extremity [Unknown]
  - Laser therapy [Unknown]
  - Arthralgia [Unknown]
  - Chest pain [Unknown]
  - Back pain [Unknown]
  - Feeling abnormal [Unknown]
  - Thrombosis [Unknown]
  - Skin haemorrhage [Unknown]
  - Chills [Unknown]
  - Depression [Unknown]
  - Swelling [Unknown]
  - Pyrexia [Unknown]

NARRATIVE: CASE EVENT DATE: 20220101
